FAERS Safety Report 12541202 (Version 2)
Quarter: 2016Q3

REPORT INFORMATION
  Report Type: Report from Study
  Country: BR (occurrence: BR)
  Receive Date: 20160708
  Receipt Date: 20160808
  Transmission Date: 20161109
  Serious: Yes (Hospitalization)
  Sender: FDA-Public Use
  Company Number: PHHY2015BR104179

PATIENT
  Sex: Male
  Weight: 21 kg

DRUGS (3)
  1. ACIDO FOLICO//FOLIC ACID [Concomitant]
     Active Substance: FOLIC ACID
     Indication: IRON OVERLOAD
     Dosage: 20 DRP, QD
     Route: 048
  2. HYDROXYUREA. [Concomitant]
     Active Substance: HYDROXYUREA
     Indication: IRON OVERLOAD
     Dosage: 1 DF, QD
     Route: 048
     Dates: start: 2014
  3. EXJADE [Suspect]
     Active Substance: DEFERASIROX
     Indication: SICKLE CELL ANAEMIA
     Dosage: 25 MG/KG, QD (1 TABLET OF 500 MG DAILY)
     Route: 048
     Dates: start: 2015

REACTIONS (14)
  - Cholelithiasis [Recovering/Resolving]
  - Serum ferritin increased [Unknown]
  - Gastritis [Unknown]
  - Nausea [Recovered/Resolved]
  - Hypophagia [Unknown]
  - Abdominal pain upper [Unknown]
  - Vomiting [Unknown]
  - Pneumonia [Recovered/Resolved]
  - Malaise [Unknown]
  - Gastric infection [Unknown]
  - Wrong technique in product usage process [Unknown]
  - Gastric disorder [Unknown]
  - Weight increased [Recovered/Resolved]
  - Constipation [Recovered/Resolved]
